FAERS Safety Report 19147583 (Version 8)
Quarter: 2022Q1

REPORT INFORMATION
  Report Type: Report from Study
  Country: CA (occurrence: CA)
  Receive Date: 20210416
  Receipt Date: 20220110
  Transmission Date: 20220423
  Serious: Yes (Hospitalization, Other)
  Sender: FDA-Public Use
  Company Number: CA-JNJFOC-20210404611

PATIENT
  Age: 76 Year
  Sex: Male

DRUGS (2)
  1. SIMPONI [Suspect]
     Active Substance: GOLIMUMAB
     Indication: Rheumatoid arthritis
     Route: 058
     Dates: start: 20170831
  2. SIMPONI [Suspect]
     Active Substance: GOLIMUMAB

REACTIONS (8)
  - Cellulitis [Not Recovered/Not Resolved]
  - Thrombosis [Recovering/Resolving]
  - Haemorrhage [Recovering/Resolving]
  - Viral infection [Unknown]
  - Blood iron decreased [Recovering/Resolving]
  - Vitamin B12 decreased [Recovering/Resolving]
  - Abnormal loss of weight [Not Recovered/Not Resolved]
  - Gastritis [Unknown]
